FAERS Safety Report 8125007-2 (Version None)
Quarter: 2012Q1

REPORT INFORMATION
  Report Type: 
  Country: None (occurrence: None)
  Receive Date: 20120209
  Receipt Date: 20120130
  Transmission Date: 20120608
  Serious: Yes (Death)
  Sender: FDA-Public Use
  Company Number: US-ROCHE-1027656

PATIENT
  Sex: Female
  Weight: 137.56 kg

DRUGS (8)
  1. GLIPIZIDE [Concomitant]
     Indication: DIABETES MELLITUS
     Route: 048
  2. XOLAIR [Suspect]
     Indication: ASTHMA
     Route: 058
  3. ENALAPRIL MALEATE [Concomitant]
     Route: 048
  4. NOVOLOG [Concomitant]
     Indication: DIABETES MELLITUS
     Route: 058
  5. METHOTREXATE [Concomitant]
     Route: 048
  6. SYMBICORT [Concomitant]
     Indication: ASTHMA
  7. DILTIAZEM HCL [Concomitant]
     Indication: CORONARY ARTERY DISEASE
     Route: 048
  8. ALBUTEROL [Concomitant]
     Indication: ASTHMA

REACTIONS (1)
  - DEATH [None]
